FAERS Safety Report 5317737-2 (Version None)
Quarter: 2007Q2

REPORT INFORMATION
  Report Type: 
  Country: None (occurrence: None)
  Receive Date: 20070507
  Receipt Date: 20070424
  Transmission Date: 20071010
  Serious: Yes (Other)
  Sender: FDA-Public Use
  Company Number: NL-AMGEN-US202012

PATIENT
  Sex: Male
  Weight: 88 kg

DRUGS (4)
  1. ENBREL [Suspect]
     Indication: RHEUMATOID ARTHRITIS
     Route: 058
     Dates: start: 20010301, end: 20041221
  2. LIPITOR [Concomitant]
     Dosage: 10 MG
     Route: 048
  3. TILDIEM [Concomitant]
     Dosage: UNKNOWN
     Route: 048
  4. LOSEC [Concomitant]
     Dosage: 20 MG
     Route: 048

REACTIONS (3)
  - COUGH [None]
  - HEADACHE [None]
  - PACHYMENINGITIS [None]
